FAERS Safety Report 9752882 (Version 1)
Quarter: 2013Q4

REPORT INFORMATION
  Report Type: Spontaneous
  Country: FR (occurrence: JP)
  Receive Date: 20131213
  Receipt Date: 20131213
  Transmission Date: 20140711
  Serious: Yes (Death, Other)
  Sender: FDA-Public Use
  Company Number: JP-FRI-1000052218

PATIENT
  Age: 47 Year
  Sex: Male

DRUGS (6)
  1. ACAMPROSATE [Suspect]
     Indication: ALCOHOLISM
     Dosage: 1998 MG
     Route: 048
     Dates: start: 20130704, end: 20131110
  2. BENZALIN [Concomitant]
     Dates: start: 20120907, end: 20131110
  3. HORIZON [Concomitant]
     Dates: start: 20120907, end: 20131110
  4. BIO THREE [Concomitant]
     Dates: start: 20130505, end: 20131110
  5. ZOLPIDEM TARTRATE [Concomitant]
     Dates: start: 20130505, end: 20131110
  6. NOVORAPID [Concomitant]
     Dates: start: 20130505, end: 20131110

REACTIONS (1)
  - Completed suicide [Fatal]
